FAERS Safety Report 18875047 (Version 2)
Quarter: 2021Q2

REPORT INFORMATION
  Report Type: Spontaneous
  Country: US (occurrence: US)
  Receive Date: 20210210
  Receipt Date: 20210407
  Transmission Date: 20210717
  Serious: Yes (Death, Life-Threatening, Other)
  Sender: FDA-Public Use
  Company Number: US-ELI_LILLY_AND_COMPANY-US202102003179

PATIENT
  Age: 71 Year
  Sex: Male

DRUGS (1)
  1. BAMLANIVIMAB 700MG [Suspect]
     Active Substance: BAMLANIVIMAB
     Indication: COVID-19
     Dosage: UNK, SINGLE
     Route: 042
     Dates: start: 20210203, end: 20210203

REACTIONS (11)
  - Cardio-respiratory arrest [Fatal]
  - Bradycardia [Unknown]
  - Hypotension [Unknown]
  - Atrioventricular block first degree [Unknown]
  - Pneumonia [Unknown]
  - Pulmonary congestion [Unknown]
  - Atrial fibrillation [Unknown]
  - Unresponsive to stimuli [Unknown]
  - Depressed level of consciousness [Unknown]
  - Bundle branch block right [Unknown]
  - Pulse absent [Unknown]

NARRATIVE: CASE EVENT DATE: 20210203
